FAERS Safety Report 4714196-5 (Version None)
Quarter: 2005Q3

REPORT INFORMATION
  Report Type: 
  Country: None (occurrence: None)
  Receive Date: 20050713
  Receipt Date: 20050713
  Transmission Date: 20060218
  Serious: Yes (Other)
  Sender: FDA-Public Use
  Company Number: None

PATIENT
  Age: 67 Year
  Sex: Male
  Weight: 99.7913 kg

DRUGS (2)
  1. VYTORIN [Suspect]
     Indication: BLOOD CHOLESTEROL INCREASED
     Dosage: 1 TABLET DAY ORAL
     Route: 048
     Dates: start: 20050517, end: 20050707
  2. CLARITIN [Concomitant]

REACTIONS (1)
  - PROSTATIC SPECIFIC ANTIGEN DECREASED [None]
